FAERS Safety Report 7628669-9 (Version None)
Quarter: 2011Q3

REPORT INFORMATION
  Report Type: 
  Country: None (occurrence: None)
  Receive Date: 20110714
  Receipt Date: 20110701
  Transmission Date: 20111222
  Serious: Yes (Life-Threatening, Hospitalization)
  Sender: FDA-Public Use
  Company Number: TCI2011A03800

PATIENT
  Age: 62 Year
  Sex: Male

DRUGS (2)
  1. ACTOS [Suspect]
     Indication: DIABETES MELLITUS
     Dosage: 15MG (15MG, 1 IN 1 D) PER ORAL
     Route: 048
     Dates: start: 20090807
  2. FASTIC (NATEGLINIDE) [Concomitant]

REACTIONS (2)
  - BLADDER CANCER [None]
  - HAEMATURIA [None]
